FAERS Safety Report 5239032-2 (Version None)
Quarter: 2007Q1

REPORT INFORMATION
  Report Type: 
  Country: None (occurrence: None)
  Receive Date: 20061208
  Receipt Date: 20050621
  Transmission Date: 20070707
  Serious: Yes (Other)
  Sender: FDA-Public Use
  Company Number: 2005UW09466

PATIENT
  Age: 42 Year
  Sex: Female

DRUGS (3)
  1. CRESTOR [Suspect]
     Dosage: 10 MG PO
     Route: 048
  2. DURAGESIC-100 [Concomitant]
  3. PSYCHOTROPIC DRUGS [Concomitant]

REACTIONS (1)
  - DYSURIA [None]
